FAERS Safety Report 7731727-1 (Version None)
Quarter: 2011Q3

REPORT INFORMATION
  Report Type: 
  Country: None (occurrence: None)
  Receive Date: 20110906
  Receipt Date: 20110830
  Transmission Date: 20111222
  Serious: Yes (Hospitalization, Other)
  Sender: FDA-Public Use
  Company Number: PHHY2010US68040

PATIENT
  Sex: Female

DRUGS (15)
  1. RESTASIS [Concomitant]
     Dosage: UNK
  2. NEXIUM [Concomitant]
     Dosage: UNK
  3. TOPROL-XL [Interacting]
     Dosage: 25 MG, BID
     Dates: end: 20101130
  4. RECLAST [Concomitant]
     Dosage: UNK
  5. BACLOFEN [Concomitant]
     Dosage: UNK
  6. ALBUTEROL SULFATE AUTOHALER [Concomitant]
     Dosage: UNK
  7. ANTEROVERT [Concomitant]
     Dosage: UNK
  8. KLONOPIN [Concomitant]
     Dosage: UNK
  9. CALCIUM CARBONATE [Concomitant]
     Dosage: UNK
  10. VITAMIN D [Concomitant]
     Dosage: UNK
  11. GILENYA [Suspect]
     Indication: MULTIPLE SCLEROSIS
     Dosage: 0.5 MG, QD
     Route: 048
     Dates: start: 20101008
  12. NORATIN [Concomitant]
     Dosage: UNK
  13. MULTI-VITAMINS [Concomitant]
     Dosage: UNK
  14. GILENYA [Interacting]
     Dosage: 0.5 MG, QOD
     Route: 048
  15. PROVIGIL [Concomitant]
     Dosage: UNK

REACTIONS (9)
  - VOMITING [None]
  - NAUSEA [None]
  - HEART RATE DECREASED [None]
  - HEART RATE IRREGULAR [None]
  - FALL [None]
  - BRONCHITIS [None]
  - VIRAL INFECTION [None]
  - DRUG INTERACTION [None]
  - ALOPECIA [None]
